FAERS Safety Report 6663112-8 (Version None)
Quarter: 2010Q1

REPORT INFORMATION
  Report Type: 
  Country: None (occurrence: None)
  Receive Date: 20100323
  Receipt Date: 20100114
  Transmission Date: 20100710
  Serious: No
  Sender: FDA-Public Use
  Company Number: 100114-0000042

PATIENT
  Sex: Female

DRUGS (1)
  1. SABRIL [Suspect]
     Indication: DRUG USE FOR UNKNOWN INDICATION
     Dosage: 3 GM;QD;

REACTIONS (2)
  - ELEVATED MOOD [None]
  - SOMNOLENCE [None]
